FAERS Safety Report 8594954-X (Version None)
Quarter: 2012Q3

REPORT INFORMATION
  Report Type: 
  Country: None (occurrence: None)
  Receive Date: 20120815
  Receipt Date: 20120809
  Transmission Date: 20120928
  Serious: Yes (Disabling, Other)
  Sender: FDA-Public Use
  Company Number: PHHY2012BR069717

PATIENT
  Age: 86 Year
  Sex: Female

DRUGS (1)
  1. DIOVAN [Suspect]
     Dosage: 2 TABLETS, DAILY

REACTIONS (2)
  - CEREBROVASCULAR ACCIDENT [None]
  - HEMIPLEGIA [None]
